FAERS Safety Report 6382212-3 (Version None)
Quarter: 2009Q3

REPORT INFORMATION
  Report Type: 
  Country: None (occurrence: None)
  Receive Date: 20090930
  Receipt Date: 20090918
  Transmission Date: 20100115
  Serious: Yes (Other)
  Sender: FDA-Public Use
  Company Number: US-BAYER-200914175BCC

PATIENT
  Age: 61 Year
  Sex: Male
  Weight: 57 kg

DRUGS (2)
  1. BAYER QUICK RELEASE CRYSTALS [Suspect]
     Indication: BACK PAIN
     Dosage: UNIT DOSE: 1 DF
     Route: 048
     Dates: start: 20090801
  2. ACETAMINOPHEN [Concomitant]
     Route: 065

REACTIONS (4)
  - DYSPNOEA [None]
  - GLOSSODYNIA [None]
  - SINUS HEADACHE [None]
  - SPEECH DISORDER [None]
